FAERS Safety Report 4407158-9 (Version None)
Quarter: 2004Q3

REPORT INFORMATION
  Report Type: 
  Country: None (occurrence: None)
  Receive Date: 20040723
  Receipt Date: 20040723
  Transmission Date: 20050211
  Serious: Yes (Other)
  Sender: FDA-Public Use
  Company Number: None

PATIENT
  Age: 55 Year
  Sex: Male
  Weight: 88.5 kg

DRUGS (13)
  1. SEPTOCAINE [Suspect]
  2. THEOPHYLLINE (INWOOD) [Concomitant]
  3. ALBUTEROL [Concomitant]
  4. IPATROPIUM BROMIDE [Concomitant]
  5. TRIAMCINOLONE [Concomitant]
  6. VIATMIN E [Concomitant]
  7. FAMOTIDINE [Concomitant]
  8. SELENIUM TRACE METAL ADDITIVE [Concomitant]
  9. SUCRALFATE [Concomitant]
  10. CLOTRIMAZOLE [Concomitant]
  11. SIMETHICONE [Concomitant]
  12. BETAMETHASONE DIPROPIONATE [Concomitant]
  13. TERBINAFINE HYDROCHLORIDE CREAM 1% [Concomitant]

REACTIONS (3)
  - NAUSEA [None]
  - RESPIRATORY DISTRESS [None]
  - VOMITING [None]
